FAERS Safety Report 17650873 (Version 1)
Quarter: 2020Q2

REPORT INFORMATION
  Report Type: Spontaneous
  Country: US (occurrence: US)
  Receive Date: 20200408
  Receipt Date: 20200408
  Transmission Date: 20200713
  Serious: Yes (Other)
  Sender: FDA-Public Use
  Company Number: None

PATIENT
  Age: 58 Year
  Sex: Female

DRUGS (6)
  1. FASLODEX [Concomitant]
     Active Substance: FULVESTRANT
  2. REGLAN [Concomitant]
     Active Substance: METOCLOPRAMIDE HYDROCHLORIDE
  3. XANAX [Concomitant]
     Active Substance: ALPRAZOLAM
  4. ZOFRAN [Concomitant]
     Active Substance: ONDANSETRON HYDROCHLORIDE
  5. IBRANCE [Suspect]
     Active Substance: PALBOCICLIB
     Indication: CARCINOID TUMOUR
     Dosage: ?          OTHER ROUTE:PO Q21D THEN 7 DAYS OFF?
     Dates: start: 20200226
  6. PROAIR HFA AER [Concomitant]

REACTIONS (5)
  - Lung neoplasm malignant [None]
  - Dyspnoea [None]
  - Nausea [None]
  - Somnolence [None]
  - Asthenia [None]

NARRATIVE: CASE EVENT DATE: 202004
